FAERS Safety Report 7778180-X (Version None)
Quarter: 2011Q3

REPORT INFORMATION
  Report Type: 
  Country: None (occurrence: None)
  Receive Date: 20110926
  Receipt Date: 20110921
  Transmission Date: 20111222
  Serious: Yes (Other)
  Sender: FDA-Public Use
  Company Number: BR-BAYER-2011-072272

PATIENT
  Age: 50 Year
  Sex: Male
  Weight: 91 kg

DRUGS (2)
  1. PROPRANOLOL HCL [Concomitant]
     Indication: VARICOSE VEIN
     Dosage: 1 DF, BID
     Route: 048
     Dates: start: 20110501
  2. SORAFENIB (RAF KINASE INHIBITOR) [Suspect]
     Indication: HEPATIC NEOPLASM MALIGNANT
     Dosage: 400 MG, BID
     Route: 048
     Dates: start: 20110713, end: 20110919

REACTIONS (11)
  - SKIN HAEMORRHAGE [None]
  - BREAST SWELLING [None]
  - ANORECTAL DISCOMFORT [None]
  - UNEVALUABLE EVENT [None]
  - DIARRHOEA [None]
  - WEIGHT INCREASED [None]
  - TINEA INFECTION [None]
  - MUSCLE SPASMS [None]
  - PENILE BLISTER [None]
  - BREAST DISCHARGE [None]
  - VOMITING [None]
